FAERS Safety Report 16345898 (Version 1)
Quarter: 2019Q2

REPORT INFORMATION
  Report Type: Spontaneous
  Country: FR (occurrence: FR)
  Receive Date: 20190523
  Receipt Date: 20190523
  Transmission Date: 20190711
  Serious: Yes (Other)
  Sender: FDA-Public Use
  Company Number: FR-ALKEM LABORATORIES LIMITED-FR-ALKEM-2019-04338

PATIENT
  Age: 66 Year
  Sex: Female

DRUGS (4)
  1. RASAGILINE MESYLATE. [Suspect]
     Active Substance: RASAGILINE MESYLATE
     Indication: PARKINSON^S DISEASE
     Dosage: 1 MILLIGRAM, QD
     Route: 065
  2. ROPINIROLE. [Concomitant]
     Active Substance: ROPINIROLE
     Indication: PARKINSON^S DISEASE
     Dosage: 6 MILLIGRAM, QD PROLONGED RELEASE
     Route: 065
  3. LEVODOPA/ENTACAPONE [Concomitant]
     Indication: PARKINSON^S DISEASE
     Dosage: 900 MG/D OF LEVODOPA EQUIVALENT DAILY DOSE
     Route: 065
  4. AMANTADINE. [Concomitant]
     Active Substance: AMANTADINE HYDROCHLORIDE
     Indication: PARKINSON^S DISEASE
     Dosage: 200 MILLIGRAM, QD
     Route: 065

REACTIONS (2)
  - Tendon rupture [Unknown]
  - Arthralgia [Recovering/Resolving]
